FAERS Safety Report 5036941-4 (Version None)
Quarter: 2006Q2

REPORT INFORMATION
  Report Type: 
  Country: None (occurrence: None)
  Receive Date: 20060626
  Receipt Date: 20060612
  Transmission Date: 20061013
  Serious: Yes (Other)
  Sender: FDA-Public Use
  Company Number: 226258

PATIENT
  Sex: Male

DRUGS (1)
  1. SOMATROPIN (SOMATROPIN) POWDER FOR INJECTION [Suspect]
     Indication: GROWTH HORMONE DEFICIENCY
     Dosage: SEE IMAGE

REACTIONS (8)
  - HYPOVENTILATION [None]
  - INSULIN-LIKE GROWTH FACTOR DECREASED [None]
  - OBSTRUCTION [None]
  - POOR QUALITY SLEEP [None]
  - RESPIRATORY FAILURE [None]
  - SLEEP APNOEA SYNDROME [None]
  - SLEEP DISORDER [None]
  - SNORING [None]
